FAERS Safety Report 9228523 (Version 1)
Quarter: 2013Q2

REPORT INFORMATION
  Report Type: Spontaneous
  Country: IT (occurrence: IT)
  Receive Date: 20130412
  Receipt Date: 20130412
  Transmission Date: 20140414
  Serious: Yes (Hospitalization)
  Sender: FDA-Public Use
  Company Number: IT-GLAXOSMITHKLINE-B0882945A

PATIENT
  Age: 42 Year
  Sex: Female

DRUGS (3)
  1. ZANTAC [Suspect]
     Indication: ABDOMINAL PAIN
     Dosage: 1VIAL PER DAY
     Route: 042
     Dates: start: 20130403, end: 20130403
  2. BUSCOPAN [Suspect]
     Indication: ABDOMINAL PAIN
     Dosage: 1VIAL PER DAY
     Route: 042
     Dates: start: 20130403, end: 20130403
  3. NEBIVOLOL [Concomitant]

REACTIONS (2)
  - Cough [Recovered/Resolved]
  - Sensory disturbance [Recovered/Resolved]
